FAERS Safety Report 5389815-3 (Version None)
Quarter: 2007Q3

REPORT INFORMATION
  Report Type: 
  Country: None (occurrence: None)
  Receive Date: 20070718
  Receipt Date: 20070711
  Transmission Date: 20080115
  Serious: Yes (Other)
  Sender: FDA-Public Use
  Company Number: PHBS2007JP11798

PATIENT

DRUGS (1)
  1. AREDIA [Suspect]
     Indication: OSTEOGENESIS IMPERFECTA

REACTIONS (3)
  - LOWER LIMB FRACTURE [None]
  - PYREXIA [None]
  - UPPER LIMB FRACTURE [None]
